FAERS Safety Report 4454810-5 (Version None)
Quarter: 2004Q3

REPORT INFORMATION
  Report Type: 
  Country: None (occurrence: None)
  Receive Date: 20040826
  Receipt Date: 20040504
  Transmission Date: 20050211
  Serious: No
  Sender: FDA-Public Use
  Company Number: 2004US002116

PATIENT
  Age: 60 Year
  Sex: Female
  Weight: 81.6 kg

DRUGS (6)
  1. ALOXI [Suspect]
     Indication: PROPHYLAXIS OF NAUSEA AND VOMITING
     Dosage: 0.25MG, SINGLE; INTRAVENOUS
     Route: 042
     Dates: start: 20040430, end: 20040430
  2. SODIUM CHLORIDE [Concomitant]
  3. DEXAMETHASONE [Concomitant]
  4. ATIVAN [Concomitant]
  5. ADRIAMYCIN PFS [Concomitant]
  6. NEULASTA [Concomitant]

REACTIONS (1)
  - HEADACHE [None]
